FAERS Safety Report 4985078-9 (Version None)
Quarter: 2006Q1

REPORT INFORMATION
  Report Type: 
  Country: None (occurrence: None)
  Receive Date: 20060309
  Receipt Date: 20050823
  Transmission Date: 20060701
  Serious: Yes (Other)
  Sender: FDA-Public Use
  Company Number: 415548

PATIENT
  Sex: 0

DRUGS (1)
  1. ACCUTANE [Suspect]
     Dosage: 70 MG DAILY
     Dates: end: 20050723

REACTIONS (2)
  - NO ADVERSE EFFECT [None]
  - PREGNANCY [None]
